FAERS Safety Report 7808708-2 (Version None)
Quarter: 2011Q4

REPORT INFORMATION
  Report Type: 
  Country: None (occurrence: None)
  Receive Date: 20111006
  Receipt Date: 20110926
  Transmission Date: 20120403
  Serious: Yes (Other)
  Sender: FDA-Public Use
  Company Number: 2011SP045908

PATIENT
  Age: 27 Year
  Sex: Female

DRUGS (2)
  1. NEXPLANON [Suspect]
     Indication: CONTRACEPTION
     Dosage: 1 DF
     Dates: start: 20110301, end: 20110928
  2. IMPLANON [Concomitant]

REACTIONS (3)
  - HYPOKINESIA [None]
  - MOVEMENT DISORDER [None]
  - DEVICE DISLOCATION [None]
